FAERS Safety Report 13276485 (Version 4)
Quarter: 2018Q4

REPORT INFORMATION
  Report Type: Report from Study
  Country: JP (occurrence: JP)
  Receive Date: 20170228
  Receipt Date: 20181107
  Transmission Date: 20190204
  Serious: Yes (Other)
  Sender: FDA-Public Use
  Company Number: JP-INCYTE CORPORATION-2017IN001416

PATIENT

DRUGS (5)
  1. RED BLOOD CELLS [Concomitant]
     Active Substance: HUMAN RED BLOOD CELL
     Indication: MYELOFIBROSIS
     Dosage: 2 IU, UNK
     Route: 041
     Dates: start: 20170417, end: 20170417
  2. JAKAVI [Suspect]
     Active Substance: RUXOLITINIB
     Dosage: 5 MG, BID
     Route: 048
     Dates: start: 20170418
  3. JAKAVI [Suspect]
     Active Substance: RUXOLITINIB
     Dosage: 10 MG, BID
     Route: 048
     Dates: start: 20160721, end: 20170417
  4. JAKAVI [Suspect]
     Active Substance: RUXOLITINIB
     Indication: MYELOFIBROSIS
     Dosage: 5 MG, BID
     Route: 048
     Dates: start: 20141030, end: 20160316
  5. JAKAVI [Suspect]
     Active Substance: RUXOLITINIB
     Dosage: 15 MG (IN TWO DIVIDED DOSES), BID
     Route: 048
     Dates: start: 20160317

REACTIONS (3)
  - Cardiac failure [Not Recovered/Not Resolved]
  - Portal vein thrombosis [Recovering/Resolving]
  - Anaemia [Recovering/Resolving]

NARRATIVE: CASE EVENT DATE: 20161018
